FAERS Safety Report 12655291 (Version 2)
Quarter: 2016Q4

REPORT INFORMATION
  Report Type: Spontaneous
  Country: US (occurrence: US)
  Receive Date: 20160816
  Receipt Date: 20161202
  Transmission Date: 20170207
  Serious: Yes (Other)
  Sender: FDA-Public Use
  Company Number: US-PFIZER INC-2016381497

PATIENT
  Age: 54 Year
  Sex: Female
  Weight: 69.85 kg

DRUGS (3)
  1. DILANTIN [Suspect]
     Active Substance: PHENYTOIN
     Indication: SEIZURE
     Dosage: 100 MG, UNK
     Route: 048
     Dates: end: 2015
  2. EPIPEN [Concomitant]
     Active Substance: EPINEPHRINE
     Indication: ALLERGY TO ARTHROPOD STING
  3. EPIPEN [Concomitant]
     Active Substance: EPINEPHRINE
     Indication: DYSPNOEA
     Dosage: STICK IT IN HER LEG AS NEEDED
     Dates: start: 2012

REACTIONS (3)
  - Anticonvulsant drug level decreased [Unknown]
  - Seizure [Unknown]
  - Condition aggravated [Unknown]

NARRATIVE: CASE EVENT DATE: 2015
